FAERS Safety Report 24024883 (Version 4)
Quarter: 2024Q3

REPORT INFORMATION
  Report Type: Report from Study
  Country: CN (occurrence: CN)
  Receive Date: 20240628
  Receipt Date: 20240710
  Transmission Date: 20241016
  Serious: No
  Sender: ROCHE
  Company Number: CN-ROCHE-3222361

PATIENT
  Age: 40 Year
  Sex: Female
  Weight: 51.0 kg

DRUGS (7)
  1. ALECTINIB [Suspect]
     Active Substance: ALECTINIB
     Indication: Non-small cell lung cancer metastatic
     Route: 048
     Dates: start: 20220221
  2. DISODIUM CANTHARIDINATE AND VITAMIN B6 [Concomitant]
     Dosage: ANTINEOPLASTIC
     Route: 042
     Dates: start: 20220721, end: 20220723
  3. DISODIUM CANTHARIDINATE AND VITAMIN B6 [Concomitant]
     Route: 042
     Dates: start: 20230324, end: 20230324
  4. POTASSIUM CHLORIDE [Concomitant]
     Active Substance: POTASSIUM CHLORIDE
     Dosage: SUPPLY POTASSIUM
     Route: 048
     Dates: start: 20220722, end: 20220723
  5. POTASSIUM CHLORIDE [Concomitant]
     Active Substance: POTASSIUM CHLORIDE
     Dosage: SUPPLY POTASSIUM
     Route: 048
     Dates: start: 20220722, end: 20220723
  6. CARBOPLATIN [Concomitant]
     Active Substance: CARBOPLATIN
     Dates: start: 20211205, end: 20220220
  7. PEMETREXED DISODIUM [Concomitant]
     Active Substance: PEMETREXED DISODIUM
     Dates: start: 20211205, end: 20220220

REACTIONS (3)
  - Urinary tract infection [Recovered/Resolved]
  - Hyperglycaemia [Recovered/Resolved]
  - Hypokalaemia [Recovered/Resolved]

NARRATIVE: CASE EVENT DATE: 20220221
